FAERS Safety Report 13923387 (Version 1)
Quarter: 2017Q3

REPORT INFORMATION
  Report Type: Spontaneous
  Country: US (occurrence: US)
  Receive Date: 20170831
  Receipt Date: 20170831
  Transmission Date: 20171127
  Serious: Yes (Other)
  Sender: FDA-Public Use
  Company Number: US-WEST-WARD PHARMACEUTICALS CORP.-US-H14001-17-03218

PATIENT

DRUGS (5)
  1. BUSULFAN. [Interacting]
     Active Substance: BUSULFAN
     Route: 065
  2. DEFEROXAMINE [Interacting]
     Active Substance: DEFEROXAMINE\DEFEROXAMINE MESYLATE
     Indication: CHELATION THERAPY
     Route: 065
  3. FLUCONAZOLE. [Suspect]
     Active Substance: FLUCONAZOLE
     Indication: PRODUCT USED FOR UNKNOWN INDICATION
     Route: 065
  4. DEFERASIROX [Interacting]
     Active Substance: DEFERASIROX
     Indication: CHELATION THERAPY
     Route: 065
  5. BUSULFAN. [Interacting]
     Active Substance: BUSULFAN
     Indication: PRODUCT USED FOR UNKNOWN INDICATION
     Dosage: WAS INFUSED OVER 2 HOURS
     Route: 042

REACTIONS (2)
  - Drug interaction [Recovering/Resolving]
  - Drug clearance decreased [Recovering/Resolving]
